FAERS Safety Report 20992901 (Version 1)
Quarter: 2022Q2

REPORT INFORMATION
  Report Type: Spontaneous
  Country: US (occurrence: None)
  Receive Date: 20220621
  Receipt Date: 20220621
  Transmission Date: 20220721
  Serious: No
  Sender: FDA-Public Use
  Company Number: None

PATIENT
  Age: 18 Year
  Sex: Male
  Weight: 65.25 kg

DRUGS (6)
  1. HIZENTRA [Suspect]
     Active Substance: HUMAN IMMUNOGLOBULIN G
     Indication: Immunodeficiency common variable
     Dosage: OTHER FREQUENCY : ONCE EVERY WEEK;?
     Route: 058
     Dates: start: 20180629
  2. IMMUNE GLOBULIN SUBCUTANEOUS (HUMAN) [Suspect]
     Active Substance: HUMAN IMMUNOGLOBULIN G
     Indication: Immunodeficiency common variable
     Dosage: OTHER QUANTITY : 1 INJECTION(S);?OTHER FREQUENCY : ONCE EVERY WEEK;?
     Route: 058
     Dates: start: 20180629
  3. HIZENTRA [Concomitant]
     Active Substance: HUMAN IMMUNOGLOBULIN G
  4. XOLAIR [Concomitant]
     Active Substance: OMALIZUMAB
  5. Levaalbuterol [Concomitant]
  6. OMEGA 3 [Concomitant]
     Active Substance: CAPSAICIN

REACTIONS (8)
  - Pyrexia [None]
  - Pain [None]
  - Oropharyngeal pain [None]
  - Cough [None]
  - Fatigue [None]
  - Depressed level of consciousness [None]
  - Asthenopia [None]
  - Headache [None]

NARRATIVE: CASE EVENT DATE: 20220613
